FAERS Safety Report 9667148 (Version 1)
Quarter: 2013Q4

REPORT INFORMATION
  Report Type: Spontaneous
  Country: US (occurrence: US)
  Receive Date: 20131104
  Receipt Date: 20131104
  Transmission Date: 20140711
  Serious: No
  Sender: FDA-Public Use
  Company Number: US-BIOGENIDEC-2013BI090267

PATIENT
  Sex: Female

DRUGS (8)
  1. TECFIDERA [Suspect]
     Indication: MULTIPLE SCLEROSIS
     Dates: start: 20130801
  2. IMMODIUM [Concomitant]
  3. PEPCID [Concomitant]
  4. BAYER [Concomitant]
  5. NUVIGIL [Concomitant]
  6. VITAMIN D [Concomitant]
  7. COLONOPIN (PRESUME KLONOPIN) [Concomitant]
  8. GAVAPENTIN [Concomitant]

REACTIONS (14)
  - Paraesthesia [Unknown]
  - Fatigue [Unknown]
  - Dysmenorrhoea [Unknown]
  - Feeling abnormal [Unknown]
  - Aphasia [Unknown]
  - Adnexa uteri pain [Unknown]
  - Back pain [Unknown]
  - Neck pain [Unknown]
  - Pain [Unknown]
  - Emotional disorder [Unknown]
  - Headache [Unknown]
  - Crying [Unknown]
  - Stress [Unknown]
  - Dyspepsia [Unknown]
